FAERS Safety Report 22148683 (Version 1)
Quarter: 2023Q1

REPORT INFORMATION
  Report Type: Spontaneous
  Country: US (occurrence: US)
  Receive Date: 20230328
  Receipt Date: 20230328
  Transmission Date: 20230417
  Serious: No
  Sender: FDA-Public Use
  Company Number: US-Calliditas-2023CAL00309

PATIENT
  Age: 29 Year
  Sex: Male
  Weight: 122 kg

DRUGS (1)
  1. TARPEYO [Suspect]
     Active Substance: BUDESONIDE
     Indication: IgA nephropathy
     Dosage: 16 MG (4 CAPSULES) ONCE DAILY
     Route: 048
     Dates: start: 20230308

REACTIONS (2)
  - Product dose omission issue [Unknown]
  - Influenza [Unknown]
